FAERS Safety Report 20170708 (Version 1)
Quarter: 2021Q4

REPORT INFORMATION
  Report Type: Spontaneous
  Country: US (occurrence: US)
  Receive Date: 20211210
  Receipt Date: 20211210
  Transmission Date: 20220303
  Serious: No
  Sender: FDA-Public Use
  Company Number: US-PFIZER INC-202101713782

PATIENT
  Age: 52 Year
  Sex: Female
  Weight: 145.5 kg

DRUGS (4)
  1. FLUCONAZOLE [Suspect]
     Active Substance: FLUCONAZOLE
     Indication: Coccidioidomycosis
     Dosage: 200MG TWICE DAILY
  2. FLUCONAZOLE [Suspect]
     Active Substance: FLUCONAZOLE
     Dosage: 200MG DAILY
  3. OPSUMIT [Suspect]
     Active Substance: MACITENTAN
     Indication: Pulmonary arterial hypertension
     Dosage: 10MG ORALLY DAILY
     Route: 048
  4. ELIQUIS [Concomitant]
     Active Substance: APIXABAN
     Dosage: UNK

REACTIONS (5)
  - Chapped lips [Unknown]
  - Dry eye [Unknown]
  - Hypotension [Unknown]
  - Limb injury [Unknown]
  - Off label use [Unknown]
